FAERS Safety Report 4455095-6 (Version None)
Quarter: 2004Q3

REPORT INFORMATION
  Report Type: 
  Country: None (occurrence: None)
  Receive Date: 20040917
  Receipt Date: 20040902
  Transmission Date: 20050211
  Serious: Yes (Other)
  Sender: FDA-Public Use
  Company Number: WAES 0409USA00443

PATIENT
  Age: 75 Year
  Sex: Female

DRUGS (6)
  1. COZAAR [Suspect]
     Indication: HYPERTENSION
     Dosage: 25 MG/DAILY,50 MG, 38 MG/DAILY, 25 MG/DAILY
     Route: 048
     Dates: start: 20011001, end: 20021210
  2. COZAAR [Suspect]
     Indication: HYPERTENSION
     Dosage: 25 MG/DAILY,50 MG, 38 MG/DAILY, 25 MG/DAILY
     Route: 048
     Dates: start: 20021211, end: 20030415
  3. COZAAR [Suspect]
     Indication: HYPERTENSION
     Dosage: 25 MG/DAILY,50 MG, 38 MG/DAILY, 25 MG/DAILY
     Route: 048
     Dates: start: 20030416, end: 20030722
  4. COZAAR [Suspect]
     Indication: HYPERTENSION
     Dosage: 25 MG/DAILY,50 MG, 38 MG/DAILY, 25 MG/DAILY
     Route: 048
     Dates: start: 20030723, end: 20040411
  5. LIPITOR [Concomitant]
  6. ASPIRIN [Concomitant]

REACTIONS (2)
  - DEMENTIA ALZHEIMER'S TYPE [None]
  - MEMORY IMPAIRMENT [None]
